FAERS Safety Report 24591519 (Version 1)
Quarter: 2024Q4

REPORT INFORMATION
  Report Type: Spontaneous
  Country: US (occurrence: US)
  Receive Date: 20241108
  Receipt Date: 20241108
  Transmission Date: 20250114
  Serious: No
  Sender: BIOVITRUM
  Company Number: US-BIOVITRUM-2024-US-014307

PATIENT
  Age: 72 Year
  Sex: Female

DRUGS (3)
  1. PACRITINIB [Suspect]
     Active Substance: PACRITINIB
     Indication: Product used for unknown indication
     Dosage: TWICE A DAY
  2. PACRITINIB [Suspect]
     Active Substance: PACRITINIB
     Dosage: TWICE A DAY
  3. PACRITINIB [Suspect]
     Active Substance: PACRITINIB
     Dosage: TWICE A DAY

REACTIONS (1)
  - Gastrointestinal disorder [Recovered/Resolved]
